FAERS Safety Report 8594291 (Version 3)
Quarter: 2015Q1

REPORT INFORMATION
  Report Type: Spontaneous
  Country: US (occurrence: US)
  Receive Date: 20120604
  Receipt Date: 20150325
  Transmission Date: 20150721
  Serious: Yes (Death, Hospitalization, Congenital Anomaly, Other)
  Sender: FDA-Public Use
  Company Number: US-ELI_LILLY_AND_COMPANY-US201205007616

PATIENT
  Age: 27 Day

DRUGS (2)
  1. PROZAC [Suspect]
     Active Substance: FLUOXETINE HYDROCHLORIDE
     Indication: PRODUCT USED FOR UNKNOWN INDICATION
     Dosage: UNK, UNKNOWN
     Route: 064
  2. PROZAC [Suspect]
     Active Substance: FLUOXETINE HYDROCHLORIDE
     Indication: PRODUCT USED FOR UNKNOWN INDICATION
     Dosage: UNK, UNKNOWN
     Route: 064

REACTIONS (8)
  - Sudden infant death syndrome [Fatal]
  - Foetal exposure during pregnancy [Recovered/Resolved]
  - Cleft lip and palate [Unknown]
  - Infantile spasms [Recovering/Resolving]
  - Talipes [Unknown]
  - Adverse event [Unknown]
  - Small for dates baby [Unknown]
  - Epilepsy [Unknown]

NARRATIVE: CASE EVENT DATE: 19980728
